FAERS Safety Report 21328928 (Version 1)
Quarter: 2022Q3

REPORT INFORMATION
  Report Type: Spontaneous
  Country: US (occurrence: US)
  Receive Date: 20220913
  Receipt Date: 20220913
  Transmission Date: 20221027
  Serious: No
  Sender: FDA-Public Use
  Company Number: US-SA-SAC20220912001694

PATIENT
  Age: 17 Year
  Sex: Female

DRUGS (1)
  1. DUPIXENT [Suspect]
     Active Substance: DUPILUMAB
     Dosage: QOW - UNK DOSE
     Route: 058
     Dates: start: 20201028

REACTIONS (2)
  - Skin disorder [Unknown]
  - Inappropriate schedule of product administration [Unknown]
